FAERS Safety Report 17046905 (Version 1)
Quarter: 2019Q4

REPORT INFORMATION
  Report Type: Spontaneous
  Country: US (occurrence: US)
  Receive Date: 20191018
  Receipt Date: 20191018
  Transmission Date: 20200122
  Serious: Yes (Hospitalization)
  Sender: FDA-Public Use
  Company Number: None

PATIENT
  Age: 55 Year
  Sex: Male

DRUGS (8)
  1. COSENTYX [Suspect]
     Active Substance: SECUKINUMAB
     Indication: ANKYLOSING SPONDYLITIS
     Route: 058
     Dates: start: 20160826
  2. LIOTHYRONINE [Concomitant]
     Active Substance: LIOTHYRONINE
  3. HUMIRA [Concomitant]
     Active Substance: ADALIMUMAB
  4. TIZANIDINE. [Concomitant]
     Active Substance: TIZANIDINE
  5. CELEBREX [Suspect]
     Active Substance: CELECOXIB
  6. LEVOTHYROXIN [Concomitant]
     Active Substance: LEVOTHYROXINE
  7. METHOTREXATE. [Concomitant]
     Active Substance: METHOTREXATE
  8. OXYCODONE AND ACETAMINOPHEN [Concomitant]
     Active Substance: ACETAMINOPHEN\OXYCODONE HYDROCHLORIDE

REACTIONS (1)
  - Thyroidectomy [None]

NARRATIVE: CASE EVENT DATE: 20191011
